FAERS Safety Report 10029604 (Version 1)
Quarter: 2014Q1

REPORT INFORMATION
  Report Type: Spontaneous
  Country: US (occurrence: None)
  Receive Date: 20140320
  Receipt Date: 20140320
  Transmission Date: 20141002
  Serious: Yes (Other)
  Sender: FDA-Public Use
  Company Number: None

PATIENT
  Age: 58 Year
  Sex: Female

DRUGS (1)
  1. PROLIA [Suspect]

REACTIONS (6)
  - Gait disturbance [None]
  - Mass [None]
  - Myalgia [None]
  - Arthritis [None]
  - Nerve compression [None]
  - Inflammation [None]
